FAERS Safety Report 7531579-9 (Version None)
Quarter: 2011Q2

REPORT INFORMATION
  Report Type: 
  Country: None (occurrence: None)
  Receive Date: 20110606
  Receipt Date: 20110606
  Transmission Date: 20111010
  Serious: No
  Sender: FDA-Public Use
  Company Number: None

PATIENT
  Age: 18 Year
  Sex: Female

DRUGS (1)
  1. MINOCYCLINE HCL [Suspect]
     Dates: start: 20071101, end: 20090901

REACTIONS (6)
  - ARTHRALGIA [None]
  - PRURITUS [None]
  - HEPATITIS [None]
  - ABDOMINAL PAIN UPPER [None]
  - BIOPSY LIVER ABNORMAL [None]
  - LIVER DISORDER [None]
